FAERS Safety Report 23763598 (Version 1)
Quarter: 2024Q2

REPORT INFORMATION
  Report Type: Report from Study
  Country: US (occurrence: US)
  Receive Date: 20240419
  Receipt Date: 20240419
  Transmission Date: 20240716
  Serious: Yes (Other)
  Sender: FDA-Public Use
  Company Number: US-Stemline Therapeutics, Inc.-2024ST002315

PATIENT
  Age: 86 Year
  Sex: Female

DRUGS (2)
  1. ORSERDU [Suspect]
     Active Substance: ELACESTRANT
     Indication: Product used for unknown indication
     Route: 048
  2. ORSERDU [Suspect]
     Active Substance: ELACESTRANT
     Route: 048

REACTIONS (3)
  - Product use complaint [Unknown]
  - Salivary hyposecretion [Unknown]
  - Oesophageal achalasia [Unknown]

NARRATIVE: CASE EVENT DATE: 20240409
